FAERS Safety Report 6395632-8 (Version None)
Quarter: 2009Q4

REPORT INFORMATION
  Report Type: 
  Country: None (occurrence: None)
  Receive Date: 20091006
  Receipt Date: 20090928
  Transmission Date: 20100525
  Serious: Yes (Hospitalization)
  Sender: FDA-Public Use
  Company Number: US-000934

PATIENT
  Sex: Male

DRUGS (1)
  1. SOMATROPIN 0.6 MG [Suspect]
     Indication: DWARFISM
     Dosage: (0.6 MG QD SUBCUTANEOUS)
     Route: 058
     Dates: start: 20080909

REACTIONS (2)
  - BRONCHIAL HYPERREACTIVITY [None]
  - VOMITING [None]
